FAERS Safety Report 5949401-0 (Version None)
Quarter: 2008Q4

REPORT INFORMATION
  Report Type: 
  Country: None (occurrence: None)
  Receive Date: 20081112
  Receipt Date: 20081030
  Transmission Date: 20090506
  Serious: Yes (Hospitalization)
  Sender: FDA-Public Use
  Company Number: PHHY2008MX26709

PATIENT
  Age: 62 Year
  Sex: Female

DRUGS (1)
  1. DIOVAN HCT [Suspect]
     Indication: HYPERTENSION
     Dosage: 1 DF PER DAY
     Route: 048
     Dates: start: 20071201

REACTIONS (2)
  - FALL [None]
  - HEAD INJURY [None]
